FAERS Safety Report 15497572 (Version 1)
Quarter: 2018Q4

REPORT INFORMATION
  Report Type: Spontaneous
  Country: US (occurrence: US)
  Receive Date: 20181015
  Receipt Date: 20181015
  Transmission Date: 20190205
  Serious: No
  Sender: FDA-Public Use
  Company Number: US-009507513-1809USA012172

PATIENT
  Sex: Female

DRUGS (13)
  1. ERGOCALCIFEROL. [Concomitant]
     Active Substance: ERGOCALCIFEROL
  2. PHENOBARBITAL. [Concomitant]
     Active Substance: PHENOBARBITAL
  3. ASPIRIN. [Concomitant]
     Active Substance: ASPIRIN
  4. TYLENOL [Concomitant]
     Active Substance: ACETAMINOPHEN
  5. SYLATRON [Suspect]
     Active Substance: PEGINTERFERON ALFA-2B
     Dosage: 200 MICROGRAM, ONCE WEEKLY
     Route: 058
  6. HYDROXYZINE [Concomitant]
     Active Substance: HYDROXYZINE HYDROCHLORIDE
  7. SYLATRON [Suspect]
     Active Substance: PEGINTERFERON ALFA-2B
     Dosage: 200 MICROGRAM, ONCE WEEKLY
     Route: 058
  8. METHADONE HYDROCHLORIDE. [Concomitant]
     Active Substance: METHADONE HYDROCHLORIDE
  9. SYLATRON [Suspect]
     Active Substance: PEGINTERFERON ALFA-2B
     Indication: MYELOID LEUKAEMIA
     Dosage: 200 MICROGRAM, ONCE WEEKLY
     Route: 058
     Dates: start: 20161108
  10. BELLADONNA ALKALOIDS [Concomitant]
     Active Substance: BELLADONNA ALKALOIDS
  11. SYLATRON [Suspect]
     Active Substance: PEGINTERFERON ALFA-2B
     Dosage: 200 MICROGRAM, ONCE WEEKLY
     Route: 058
  12. XANAX [Concomitant]
     Active Substance: ALPRAZOLAM
  13. PLAVIX [Concomitant]
     Active Substance: CLOPIDOGREL BISULFATE

REACTIONS (1)
  - Injection site irritation [Not Recovered/Not Resolved]
